FAERS Safety Report 9687851 (Version 2)
Quarter: 2013Q4

REPORT INFORMATION
  Report Type: Report from Study
  Country: DE (occurrence: DE)
  Receive Date: 20131114
  Receipt Date: 20131114
  Transmission Date: 20140711
  Serious: Yes (Hospitalization, Other)
  Sender: FDA-Public Use
  Company Number: DE-ABBVIE-13P-062-1116148-00

PATIENT
  Age: 50 Year
  Sex: Female
  Weight: 43 kg

DRUGS (5)
  1. HUMIRA [Suspect]
     Indication: CROHN^S DISEASE
     Route: 058
     Dates: start: 20130214, end: 20130425
  2. HUMIRA [Suspect]
     Route: 058
     Dates: start: 20130523
  3. HUMIRA [Suspect]
  4. VIGANTOL [Concomitant]
     Indication: PRODUCT USED FOR UNKNOWN INDICATION
  5. B12 ROTEXMEDICA [Concomitant]
     Indication: PRODUCT USED FOR UNKNOWN INDICATION

REACTIONS (10)
  - General physical health deterioration [Not Recovered/Not Resolved]
  - Pyrexia [Recovered/Resolved]
  - Abdominal pain [Not Recovered/Not Resolved]
  - Crohn^s disease [Not Recovered/Not Resolved]
  - Sepsis [Not Recovered/Not Resolved]
  - Gastrointestinal infection [Not Recovered/Not Resolved]
  - Ileal stenosis [Unknown]
  - Relapsing fever [Recovered/Resolved]
  - Diarrhoea [Recovered/Resolved]
  - Wound infection [Not Recovered/Not Resolved]
